FAERS Safety Report 9586493 (Version 1)
Quarter: 2013Q4

REPORT INFORMATION
  Report Type: Spontaneous
  Country: MX (occurrence: MX)
  Receive Date: 20131003
  Receipt Date: 20131003
  Transmission Date: 20140711
  Serious: Yes (Other)
  Sender: FDA-Public Use
  Company Number: PHHY2013MX109818

PATIENT
  Age: 5 Year
  Sex: Male

DRUGS (1)
  1. TRILEPTAL [Suspect]
     Indication: AUTISM SPECTRUM DISORDER
     Dosage: 5 ML, Q12H
     Route: 048
     Dates: start: 2012

REACTIONS (1)
  - Attention deficit/hyperactivity disorder [Not Recovered/Not Resolved]
